FAERS Safety Report 11415884 (Version 1)
Quarter: 2015Q3

REPORT INFORMATION
  Report Type: Report from Study
  Country: FR (occurrence: FR)
  Receive Date: 20150825
  Receipt Date: 20150825
  Transmission Date: 20151125
  Serious: Yes (Hospitalization)
  Sender: FDA-Public Use
  Company Number: FR-UNITED THERAPEUTICS-P01-824

PATIENT
  Age: 68 Year
  Sex: Female
  Weight: 63 kg

DRUGS (4)
  1. TREPROSTINIL SODIUM (SQ/IV) [Suspect]
     Active Substance: TREPROSTINIL SODIUM
     Indication: PULMONARY HYPERTENSION
     Route: 058
     Dates: start: 19990716, end: 20010718
  2. ALDACTONE [Concomitant]
     Active Substance: SPIRONOLACTONE
     Route: 048
     Dates: end: 20010629
  3. COUMADINE [Concomitant]
     Active Substance: WARFARIN SODIUM
     Route: 048
     Dates: end: 20010710
  4. FUROSEMIDE. [Concomitant]
     Active Substance: FUROSEMIDE
     Route: 048

REACTIONS (13)
  - Epilepsy [None]
  - Pyrexia [None]
  - Confusional state [None]
  - Infusion site erythema [None]
  - Renal failure [None]
  - Pulmonary vasculitis [None]
  - Infusion site pain [None]
  - Blood disorder [None]
  - Multi-organ failure [Fatal]
  - Red blood cell schistocytes present [None]
  - Arterial disorder [None]
  - Thrombotic thrombocytopenic purpura [None]
  - Thrombocytopenia [None]

NARRATIVE: CASE EVENT DATE: 20010622
